FAERS Safety Report 19769378 (Version 2)
Quarter: 2022Q2

REPORT INFORMATION
  Report Type: Report from Study
  Country: FR (occurrence: FR)
  Receive Date: 20210831
  Receipt Date: 20220530
  Transmission Date: 20220720
  Serious: Yes (Death, Other)
  Sender: FDA-Public Use
  Company Number: FR-PFIZER INC-202101108550

PATIENT

DRUGS (12)
  1. CYTARABINE [Suspect]
     Active Substance: CYTARABINE
     Indication: Haematological malignancy
     Dosage: 2000 MG/M2, 1X/DAY (FROM DAY -13 TO DAY -10)
  2. FLUDARABINE PHOSPHATE [Suspect]
     Active Substance: FLUDARABINE PHOSPHATE
     Indication: Haematological malignancy
     Dosage: 30 MG/M2, 1X/DAY (FROM DAY -13 TO DAY -10)
  3. AMSACRINE [Suspect]
     Active Substance: AMSACRINE
     Indication: Haematological malignancy
     Dosage: 100 MG/M2, 1X/DAY (FROM DAY -13 TO DAY -10)
  4. BUSULFAN [Suspect]
     Active Substance: BUSULFAN
     Indication: Haematological malignancy
     Dosage: 3.2 MG/KG, 1X/DAY (FROM DAY -4 TO DAY -3)
     Route: 042
  5. MELPHALAN [Suspect]
     Active Substance: MELPHALAN
     Indication: Haematological malignancy
     Dosage: 140 MG/M2, ON DAY -6
  6. CYCLOPHOSPHAMIDE [Concomitant]
     Active Substance: CYCLOPHOSPHAMIDE
     Indication: Prophylaxis
     Dosage: 50 MG/KG, 1X/DAY, ON DAYS +3 AND +4
  7. CYCLOSPORINE [Concomitant]
     Active Substance: CYCLOSPORINE
     Indication: Prophylaxis against graft versus host disease
     Dosage: FROM DAY +5
  8. MYCOPHENOLATE MOFETIL [Concomitant]
     Active Substance: MYCOPHENOLATE MOFETIL
     Indication: Prophylaxis against graft versus host disease
     Dosage: FROM DAY +5
  9. MESNA [Concomitant]
     Active Substance: MESNA
     Indication: Prophylaxis
     Dosage: ADMINISTERED CONCOMITANTLY WITH PTCY TO PREVENT HEMORRHAGIC CYSTITIS
     Route: 042
  10. ACYCLOVIR [Concomitant]
     Active Substance: ACYCLOVIR
     Indication: Infection prophylaxis
  11. FLUCONAZOLE [Concomitant]
     Active Substance: FLUCONAZOLE
     Indication: Infection prophylaxis
  12. SULFAMETHOXAZOLE\TRIMETHOPRIM [Concomitant]
     Active Substance: SULFAMETHOXAZOLE\TRIMETHOPRIM
     Indication: Infection prophylaxis

REACTIONS (1)
  - Septic shock [Fatal]
